FAERS Safety Report 25865049 (Version 1)
Quarter: 2025Q3

REPORT INFORMATION
  Report Type: Spontaneous
  Country: US (occurrence: US)
  Receive Date: 20250930
  Receipt Date: 20250930
  Transmission Date: 20251020
  Serious: Yes (Hospitalization)
  Sender: MYLAN
  Company Number: US-MYLANLABS-2025M1083055

PATIENT
  Age: 35 Year
  Sex: Female

DRUGS (8)
  1. SUMATRIPTAN [Suspect]
     Active Substance: SUMATRIPTAN
     Indication: Migraine with aura
  2. SUMATRIPTAN [Suspect]
     Active Substance: SUMATRIPTAN
     Route: 065
  3. SUMATRIPTAN [Suspect]
     Active Substance: SUMATRIPTAN
     Route: 065
  4. SUMATRIPTAN [Suspect]
     Active Substance: SUMATRIPTAN
  5. ETONOGESTREL [Concomitant]
     Active Substance: ETONOGESTREL
     Indication: Contraception
  6. ETONOGESTREL [Concomitant]
     Active Substance: ETONOGESTREL
     Route: 065
  7. ETONOGESTREL [Concomitant]
     Active Substance: ETONOGESTREL
     Route: 065
  8. ETONOGESTREL [Concomitant]
     Active Substance: ETONOGESTREL

REACTIONS (1)
  - Drug ineffective [Unknown]
